FAERS Safety Report 9055678 (Version 3)
Quarter: 2013Q2

REPORT INFORMATION
  Report Type: Report from Study
  Country: US (occurrence: US)
  Receive Date: 20130206
  Receipt Date: 20130620
  Transmission Date: 20140414
  Serious: Yes (Hospitalization, Other)
  Sender: FDA-Public Use
  Company Number: US-ROCHE-1142521

PATIENT
  Age: 62 Year
  Sex: Female
  Weight: 93.98 kg

DRUGS (5)
  1. BEVACIZUMAB [Suspect]
     Indication: COLORECTAL CANCER
     Dosage: UNKNOWN
     Route: 042
     Dates: start: 201201
  2. BEVACIZUMAB [Suspect]
     Dosage: UNKNOWN
     Route: 048
     Dates: start: 201210
  3. BEVACIZUMAB [Suspect]
     Route: 042
     Dates: start: 201202, end: 20121113
  4. BEVACIZUMAB [Suspect]
     Route: 042
     Dates: start: 20130101
  5. REGORAFENIB [Concomitant]
     Route: 048
     Dates: start: 20130104, end: 20130118

REACTIONS (21)
  - Dyspnoea [Recovered/Resolved]
  - Confusional state [Recovered/Resolved]
  - Pneumonia [Recovered/Resolved]
  - Loss of consciousness [Recovering/Resolving]
  - Dizziness [Unknown]
  - Cough [Not Recovered/Not Resolved]
  - Dysphonia [Unknown]
  - Fatigue [Not Recovered/Not Resolved]
  - Hepatic pain [Not Recovered/Not Resolved]
  - Decreased appetite [Not Recovered/Not Resolved]
  - Dysgeusia [Not Recovered/Not Resolved]
  - Fall [Recovering/Resolving]
  - Muscular weakness [Recovering/Resolving]
  - Pain [Not Recovered/Not Resolved]
  - Pain in extremity [Not Recovered/Not Resolved]
  - Muscular weakness [Not Recovered/Not Resolved]
  - Constipation [Recovering/Resolving]
  - Vision blurred [Not Recovered/Not Resolved]
  - Dizziness [Not Recovered/Not Resolved]
  - Joint range of motion decreased [Not Recovered/Not Resolved]
  - Fatigue [Not Recovered/Not Resolved]
